FAERS Safety Report 6021539-1 (Version None)
Quarter: 2008Q4

REPORT INFORMATION
  Report Type: 
  Country: None (occurrence: None)
  Receive Date: 20081222
  Receipt Date: 20081031
  Transmission Date: 20090506
  Serious: No
  Sender: FDA-Public Use
  Company Number: SPV1-2008-02392

PATIENT
  Age: 12 Year
  Sex: Male
  Weight: 45.8 kg

DRUGS (5)
  1. VYVANSE [Suspect]
     Dosage: 50 MG, 1X/DAY;QD, ORAL
     Route: 048
     Dates: start: 20081024
  2. ALBUTEROL [Concomitant]
  3. ADVAIR DISKUS 100/50 [Concomitant]
  4. CLONIDINE [Concomitant]
  5. FLUOXETINE [Concomitant]

REACTIONS (1)
  - DRUG EFFECT DECREASED [None]
